FAERS Safety Report 17295290 (Version 6)
Quarter: 2020Q3

REPORT INFORMATION
  Report Type: Spontaneous
  Country: US (occurrence: US)
  Receive Date: 20200121
  Receipt Date: 20200731
  Transmission Date: 20201102
  Serious: No
  Sender: FDA-Public Use
  Company Number: US-PFIZER INC-2020026770

PATIENT
  Age: 41 Year
  Sex: Female
  Weight: 61.23 kg

DRUGS (2)
  1. ADVIL [Suspect]
     Active Substance: IBUPROFEN
     Indication: BACK PAIN
  2. ADVIL [Suspect]
     Active Substance: IBUPROFEN
     Indication: ARTHRALGIA
     Dosage: 200 MG, 2X/DAY
     Dates: start: 20191227

REACTIONS (4)
  - Product physical issue [Unknown]
  - Therapeutic product effect decreased [Recovered/Resolved]
  - Product colour issue [Unknown]
  - Poor quality product administered [Unknown]
